FAERS Safety Report 5211456-9 (Version None)
Quarter: 2006Q4

REPORT INFORMATION
  Report Type: 
  Country: None (occurrence: None)
  Receive Date: 20061115
  Receipt Date: 20060822
  Transmission Date: 20070319
  Serious: No
  Sender: FDA-Public Use
  Company Number: 200617019US

PATIENT

DRUGS (1)
  1. APIDRA [Suspect]

REACTIONS (3)
  - BLOOD GLUCOSE ABNORMAL [None]
  - MUSCLE ATROPHY [None]
  - MUSCULAR WEAKNESS [None]
